FAERS Safety Report 5627702-3 (Version None)
Quarter: 2008Q1

REPORT INFORMATION
  Report Type: 
  Country: None (occurrence: None)
  Receive Date: 20080214
  Receipt Date: 20080214
  Transmission Date: 20080703
  Serious: Yes (Hospitalization)
  Sender: FDA-Public Use
  Company Number: None

PATIENT
  Sex: Female
  Weight: 59.4212 kg

DRUGS (8)
  1. TYSABRI [Suspect]
     Indication: MULTIPLE SCLEROSIS
     Dosage: 300MG ONCE Q MONTHLY (4 WEEKS) IV
     Route: 042
     Dates: start: 20071011
  2. TYSABRI [Suspect]
     Indication: MULTIPLE SCLEROSIS
     Dosage: 300MG ONCE Q MONTHLY (4 WEEKS) IV
     Route: 042
     Dates: start: 20071108
  3. TYSABRI [Suspect]
     Indication: MULTIPLE SCLEROSIS
     Dosage: 300MG ONCE Q MONTHLY (4 WEEKS) IV
     Route: 042
     Dates: start: 20071206
  4. TYSABRI [Suspect]
     Indication: MULTIPLE SCLEROSIS
     Dosage: 300MG ONCE Q MONTHLY (4 WEEKS) IV
     Route: 042
     Dates: start: 20080103
  5. PROVIGIL [Concomitant]
  6. ADDERALL 10 [Concomitant]
  7. NEURONTIN [Concomitant]
  8. DICLOFENAC SODIUM [Concomitant]

REACTIONS (2)
  - CONDITION AGGRAVATED [None]
  - MULTIPLE SCLEROSIS [None]
